FAERS Safety Report 10659765 (Version 1)
Quarter: 2014Q4

REPORT INFORMATION
  Report Type: Spontaneous
  Country: US (occurrence: None)
  Receive Date: 20141205
  Receipt Date: 20141205
  Transmission Date: 20150529
  Serious: No
  Sender: FDA-Public Use
  Company Number: 163-POMAL-14043327

PATIENT
  Age: 50 Year
  Sex: Male
  Weight: 104.3 kg

DRUGS (17)
  1. CARBAMAZEPINE. [Concomitant]
     Active Substance: CARBAMAZEPINE
  2. ZOMETA [Concomitant]
     Active Substance: ZOLEDRONIC ACID
  3. ASPRINE (ACETYLSALICYLIC ACID) [Concomitant]
  4. VITAMIN D [Concomitant]
     Active Substance: CHOLECALCIFEROL
  5. TEGRETOL (CARBAMZEPINE) [Concomitant]
  6. CALCIUM CARBONATE. [Concomitant]
     Active Substance: CALCIUM CARBONATE
  7. TEMAZEPAM. [Concomitant]
     Active Substance: TEMAZEPAM
  8. LYRICA (PREGABALINE) [Concomitant]
  9. DEXAMETHASONE. [Concomitant]
     Active Substance: DEXAMETHASONE
  10. MULTIVITAMINS [Concomitant]
     Active Substance: VITAMINS
  11. CALCIUM [Concomitant]
     Active Substance: CALCIUM
  12. CLARITIN-D (PSEUDOEPHEDRINE SULFATE, LORATADUBE( [Concomitant]
  13. ECOTRIN (ACETYLSALUCYLIC ACID) [Concomitant]
  14. EPIPEN [Concomitant]
     Active Substance: EPINEPHRINE
  15. HYDROCODONE [Concomitant]
     Active Substance: HYDROCODONE
  16. POMALYST [Suspect]
     Active Substance: POMALIDOMIDE
     Indication: PLASMA CELL MYELOMA
     Dosage: 4 MG, 21 IN 28 D, PO  04/13/2013 - ONGOING
     Route: 048
     Dates: start: 20130413
  17. CLARITIN [Concomitant]
     Active Substance: LORATADINE

REACTIONS (3)
  - Weight fluctuation [None]
  - Fluid retention [None]
  - Oedema peripheral [None]

NARRATIVE: CASE EVENT DATE: 201403
